FAERS Safety Report 19251484 (Version 2)
Quarter: 2021Q2

REPORT INFORMATION
  Report Type: Spontaneous
  Country: SG (occurrence: SG)
  Receive Date: 20210513
  Receipt Date: 20210527
  Transmission Date: 20210717
  Serious: Yes (Hospitalization, Other)
  Sender: FDA-Public Use
  Company Number: SG-ABBVIE-21K-141-3900295-00

PATIENT
  Age: 57 Year
  Sex: Male

DRUGS (3)
  1. RINVOQ [Suspect]
     Active Substance: UPADACITINIB
     Indication: RHEUMATOID ARTHRITIS
     Dosage: THE DOSAGE WAS ONE TABLET A DAY FOR 7 DAYS AND SUBSEQUENTLY 1 TABLET EVERY 2 DAYS.
     Route: 048
     Dates: start: 20210420, end: 20210427
  2. RINVOQ [Suspect]
     Active Substance: UPADACITINIB
     Route: 048
     Dates: start: 20210514
  3. RINVOQ [Suspect]
     Active Substance: UPADACITINIB
     Dosage: THE DOSAGE WAS ONE TABLET A DAY FOR 7 DAYS AND SUBSEQUENTLY 1 TABLET EVERY 2 DAYS.
     Route: 048
     Dates: start: 2021, end: 2021

REACTIONS (4)
  - Facial paresis [Recovering/Resolving]
  - Asthenia [Recovering/Resolving]
  - Cerebrovascular accident [Recovering/Resolving]
  - Muscular weakness [Unknown]

NARRATIVE: CASE EVENT DATE: 2021
